FAERS Safety Report 7542731-0 (Version None)
Quarter: 2011Q2

REPORT INFORMATION
  Report Type: 
  Country: None (occurrence: None)
  Receive Date: 20110613
  Receipt Date: 20110526
  Transmission Date: 20111010
  Serious: Yes (Death)
  Sender: FDA-Public Use
  Company Number: A0869529A

PATIENT
  Age: 56 Year
  Sex: Male

DRUGS (2)
  1. AVANDIA [Suspect]
     Dosage: 4MG TWICE PER DAY
     Route: 048
     Dates: start: 20060811, end: 20060922
  2. AVANDARYL [Suspect]
     Route: 048
     Dates: start: 20060701, end: 20060101

REACTIONS (1)
  - MYOCARDIAL INFARCTION [None]
